FAERS Safety Report 10428758 (Version 9)
Quarter: 2015Q4

REPORT INFORMATION
  Report Type: Spontaneous
  Country: US (occurrence: US)
  Receive Date: 20140903
  Receipt Date: 20151122
  Transmission Date: 20160304
  Serious: Yes (Other)
  Sender: FDA-Public Use
  Company Number: US-UCBSA-2014010474

PATIENT
  Age: 51 Year
  Sex: Female
  Weight: 130 kg

DRUGS (15)
  1. PROBIOTIC [Concomitant]
     Active Substance: PROBIOTICS NOS
     Dosage: 3 DF, 3X/DAY (TID)
     Route: 048
  2. LASIX [Concomitant]
     Active Substance: FUROSEMIDE
     Dosage: 20 MG, ONCE DAILY (QD)
     Route: 048
  3. PROAIR HRF [Concomitant]
     Dosage: 90 MCG PER PUFFS EVERY 4 HOURS, INHALER
  4. VITAMIN B3 [Concomitant]
     Active Substance: NIACIN
     Dosage: UNK, ONCE DAILY (QD)
     Route: 048
  5. METFORMIN [Concomitant]
     Active Substance: METFORMIN HYDROCHLORIDE
     Dosage: 500 MG, 2X/DAY (BID)
     Route: 048
  6. LISINOPRIL. [Concomitant]
     Active Substance: LISINOPRIL
     Dosage: 10 MG, UNK
     Route: 048
  7. CIMZIA [Suspect]
     Active Substance: CERTOLIZUMAB PEGOL
     Indication: PSORIASIS
     Dosage: 400 MG, EV 4 WEEKS (EXP DATE: JAN-2018)
     Route: 058
     Dates: start: 20101204
  8. CIMZIA [Suspect]
     Active Substance: CERTOLIZUMAB PEGOL
     Dosage: 400 MG, EV 4 WEEKS
     Dates: start: 20130710
  9. ATENOLOL. [Concomitant]
     Active Substance: ATENOLOL
     Dosage: DOSE: 25 MG
     Route: 048
  10. CIMZIA [Suspect]
     Active Substance: CERTOLIZUMAB PEGOL
     Indication: CROHN^S DISEASE
     Dosage: 200 MG, MONTHLY (QM)
     Route: 058
     Dates: start: 200911
  11. ASA [Concomitant]
     Active Substance: ASPIRIN
     Dosage: 82 MG ONCE DAILY AND 500 MG 3-4 TIMES IN A DAY
     Route: 048
  12. FLOVENT [Concomitant]
     Active Substance: FLUTICASONE PROPIONATE
     Dosage: 110 ?G, 2X/DAY (BID), 2 PUFFS INHALER
  13. CIMETIDINE [Concomitant]
     Active Substance: CIMETIDINE
     Indication: GASTROOESOPHAGEAL REFLUX DISEASE
     Dosage: 20 MG, ONCE DAILY (QD)
     Route: 048
  14. FAMOTIDINE. [Concomitant]
     Active Substance: FAMOTIDINE
     Dosage: 20 MG, 2X/DAY (BID)
     Route: 048
  15. CENTRUM [Concomitant]
     Active Substance: VITAMINS
     Dosage: 4 DF, ONCE DAILY (QD)
     Route: 048

REACTIONS (5)
  - Basal cell carcinoma [Recovered/Resolved]
  - Skin papilloma [Recovering/Resolving]
  - Scar [Recovering/Resolving]
  - Malaise [Not Recovered/Not Resolved]
  - Off label use [Unknown]

NARRATIVE: CASE EVENT DATE: 20101204
